FAERS Safety Report 4909069-9 (Version None)
Quarter: 2006Q1

REPORT INFORMATION
  Report Type: 
  Country: None (occurrence: None)
  Receive Date: 20060213
  Receipt Date: 20060202
  Transmission Date: 20060701
  Serious: Yes (Death)
  Sender: FDA-Public Use
  Company Number: CA-ABBOTT-06P-028-0324210-00

PATIENT
  Sex: Male

DRUGS (1)
  1. DILAUDID-HP [Suspect]
     Indication: PAIN

REACTIONS (3)
  - ANOXIA [None]
  - HYPOXIA [None]
  - RESPIRATORY DEPRESSION [None]
